FAERS Safety Report 9506354 (Version 1)
Quarter: 2013Q1

REPORT INFORMATION
  Report Type: Spontaneous
  Country: US (occurrence: None)
  Receive Date: 20130305
  Receipt Date: 20130305
  Transmission Date: 20140127
  Serious: Yes (Hospitalization)
  Sender: FDA-Public Use
  Company Number: 163-21880-12050396

PATIENT
  Age: 71 Year
  Sex: Male

DRUGS (8)
  1. REVLIMID (LENALIDOMIDE) (CAPSULES) [Suspect]
     Indication: PLASMA CELL MYELOMA
     Route: 048
     Dates: start: 20120227
  2. COUMADIN [Concomitant]
  3. ZOMETA [Concomitant]
  4. DEXAMETHASONE [Concomitant]
  5. ALBUTEROL SULFATE [Concomitant]
  6. ADVAIR HFA [Concomitant]
  7. NASONEX [Concomitant]
  8. SINGULAIR [Concomitant]

REACTIONS (2)
  - Pneumonia [None]
  - Sinusitis [None]
